FAERS Safety Report 5595648-5 (Version None)
Quarter: 2008Q1

REPORT INFORMATION
  Report Type: 
  Country: None (occurrence: None)
  Receive Date: 20080116
  Receipt Date: 20080116
  Transmission Date: 20080703
  Serious: Yes (Other)
  Sender: FDA-Public Use
  Company Number: None

PATIENT
  Age: 26 Year
  Sex: Female
  Weight: 104.3273 kg

DRUGS (1)
  1. CHANTIX [Suspect]

REACTIONS (4)
  - ANXIETY [None]
  - DEPRESSION [None]
  - DYSPEPSIA [None]
  - FLATULENCE [None]
